FAERS Safety Report 10063019 (Version 2)
Quarter: 2014Q2

REPORT INFORMATION
  Report Type: Report from Study
  Country: AU (occurrence: AU)
  Receive Date: 20140407
  Receipt Date: 20140507
  Transmission Date: 20141212
  Serious: Yes (Hospitalization)
  Sender: FDA-Public Use
  Company Number: AU-BRISTOL-MYERS SQUIBB COMPANY-20584892

PATIENT
  Age: 78 Year
  Sex: Male

DRUGS (4)
  1. IPILIMUMAB [Suspect]
     Indication: METASTATIC MALIGNANT MELANOMA
     Dosage: 1 DF : 225 UNITS NOS.
     Route: 042
     Dates: start: 20140321, end: 20140321
  2. TARGIN [Concomitant]
     Dosage: 1 DF : 20/10MG
     Dates: start: 20140313
  3. ENDONE [Concomitant]
     Dates: start: 20140214
  4. PARACETAMOL [Concomitant]
     Dates: start: 201403

REACTIONS (2)
  - Exfoliative rash [Recovered/Resolved with Sequelae]
  - Dyspnoea [Recovered/Resolved]
